FAERS Safety Report 15319266 (Version 1)
Quarter: 2018Q4

REPORT INFORMATION
  Report Type: Spontaneous
  Country: JP (occurrence: JP)
  Receive Date: 20180827
  Receipt Date: 20180827
  Transmission Date: 20190204
  Serious: No
  Sender: FDA-Public Use
  Company Number: JP-LUPIN PHARMACEUTICALS INC.-2018-04620

PATIENT
  Age: 95 Year
  Sex: Female

DRUGS (3)
  1. DONEPEZIL HCL 5MG TABLET [Suspect]
     Active Substance: DONEPEZIL HYDROCHLORIDE
     Indication: ANOREXIA NERVOSA
     Dosage: 10 MG, ONCE A DAY
     Route: 065
  2. SULPIRIDE [Concomitant]
     Active Substance: SULPIRIDE
     Indication: PRODUCT USED FOR UNKNOWN INDICATION
     Dosage: 100 MG, TID (3 TABLETS PER DAY)
     Route: 065
  3. DONEPEZIL HCL 5MG TABLET [Suspect]
     Active Substance: DONEPEZIL HYDROCHLORIDE
     Indication: DELUSION
     Dosage: 5 MG, ONCE A DAY
     Route: 065

REACTIONS (3)
  - Anorexia nervosa [Not Recovered/Not Resolved]
  - Depression [Not Recovered/Not Resolved]
  - Condition aggravated [Not Recovered/Not Resolved]
